FAERS Safety Report 5843394-2 (Version None)
Quarter: 2008Q3

REPORT INFORMATION
  Report Type: 
  Country: None (occurrence: None)
  Receive Date: 20080813
  Receipt Date: 20080806
  Transmission Date: 20090109
  Serious: Yes (Other)
  Sender: FDA-Public Use
  Company Number: A0741385A

PATIENT
  Sex: Female

DRUGS (5)
  1. ADVAIR DISKUS 100/50 [Suspect]
     Indication: ASTHMA
     Dosage: 1PUFF TWICE PER DAY
     Route: 055
     Dates: start: 20010101
  2. LIPITOR [Concomitant]
  3. LEVOTHROID [Concomitant]
  4. PROTONIX [Concomitant]
  5. TOPROL-XL [Concomitant]
     Indication: ANEURYSM

REACTIONS (2)
  - AORTIC ANEURYSM [None]
  - DYSPHONIA [None]
